FAERS Safety Report 7010914 (Version 2)
Quarter: 2014Q3

REPORT INFORMATION
  Report Type: Spontaneous
  Country: US (occurrence: None)
  Receive Date: 20090526
  Receipt Date: 20140924
  Transmission Date: 20150326
  Serious: Yes (Hospitalization, Other)
  Sender: FDA-Public Use
  Company Number: 2009S1004229

PATIENT
  Age: 65 Year
  Sex: Female

DRUGS (6)
  1. PHOSPHO-SODA [Suspect]
     Active Substance: SODIUM PHOSPHATE, DIBASIC\SODIUM PHOSPHATE, MONOBASIC
     Indication: COLONOSCOPY
     Dosage: PO
     Route: 048
     Dates: start: 20060226
  2. FOSAMAX [Concomitant]
     Active Substance: ALENDRONATE SODIUM
  3. ACTOS [Concomitant]
     Active Substance: PIOGLITAZONE HYDROCHLORIDE
  4. IRON [Concomitant]
     Active Substance: IRON
  5. GLUCOVANCE (METFORMIN HYDROCHLORIDE, GLIBENCLAMIDE) [Concomitant]
  6. DIOVAN [Concomitant]
     Active Substance: VALSARTAN

REACTIONS (13)
  - Renal failure acute [None]
  - Hypokalaemia [None]
  - Colitis ischaemic [None]
  - Hyponatraemia [None]
  - Hypovolaemia [None]
  - Iron deficiency anaemia [None]
  - Dialysis [None]
  - Diarrhoea [None]
  - Nephrogenic anaemia [None]
  - Renal tubular necrosis [None]
  - Pulmonary hypertension [None]
  - Renal failure [None]
  - Renal failure chronic [None]

NARRATIVE: CASE EVENT DATE: 20060302
